FAERS Safety Report 8982506 (Version 1)
Quarter: 2012Q4

REPORT INFORMATION
  Report Type: 
  Country: CA (occurrence: CA)
  Receive Date: 20121222
  Receipt Date: 20121222
  Transmission Date: 20130627
  Serious: Yes (Other)
  Sender: FDA-Public Use
  Company Number: CA-009507513-1212CAN008851

PATIENT
  Age: 48 Year
  Sex: Female

DRUGS (1)
  1. HEPALEAN LOK [Suspect]
     Route: 065

REACTIONS (2)
  - Heparin-induced thrombocytopenia [Recovered/Resolved]
  - Embolic stroke [Recovered/Resolved]
